FAERS Safety Report 13862981 (Version 2)
Quarter: 2017Q4

REPORT INFORMATION
  Report Type: Spontaneous
  Country: FR (occurrence: FR)
  Receive Date: 20170814
  Receipt Date: 20171112
  Transmission Date: 20180320
  Serious: Yes (Hospitalization)
  Sender: FDA-Public Use
  Company Number: FR-AMGEN-FRASP2017121742

PATIENT
  Age: 49 Year
  Sex: Male

DRUGS (1)
  1. NEULASTA [Suspect]
     Active Substance: PEGFILGRASTIM
     Indication: CHEMOTHERAPY CYTOKINE PROPHYLAXIS
     Dosage: 1 DF, ONE TIME DOSE
     Route: 058
     Dates: start: 20170727, end: 20170727

REACTIONS (1)
  - Spinal pain [Recovering/Resolving]

NARRATIVE: CASE EVENT DATE: 20170727
